FAERS Safety Report 4769561-7 (Version None)
Quarter: 2005Q3

REPORT INFORMATION
  Report Type: 
  Country: None (occurrence: None)
  Receive Date: 20050915
  Receipt Date: 20050906
  Transmission Date: 20060218
  Serious: Yes (Disabling)
  Sender: FDA-Public Use
  Company Number: GB-BOEHRINGER INGELHEIM PHARMACEUTICALS, INC.-2005-BP-16060YA

PATIENT
  Age: 77 Year
  Sex: Male

DRUGS (6)
  1. FLOMAX [Suspect]
     Indication: PROSTATISM
     Route: 048
  2. FINASTERIDE [Concomitant]
     Route: 048
  3. WARFARIN [Concomitant]
  4. ASPIRIN [Concomitant]
  5. CARBAZOCHROME [Concomitant]
  6. FUROSEMIDE [Concomitant]

REACTIONS (2)
  - MIOSIS [None]
  - VISUAL DISTURBANCE [None]
